FAERS Safety Report 17596895 (Version 3)
Quarter: 2020Q2

REPORT INFORMATION
  Report Type: Spontaneous
  Country: NL (occurrence: NL)
  Receive Date: 20200330
  Receipt Date: 20200520
  Transmission Date: 20200713
  Serious: Yes (Other)
  Sender: FDA-Public Use
  Company Number: NL-BRISTOL-MYERS SQUIBB COMPANY-BMS-2020-024937

PATIENT
  Sex: Female
  Weight: 63 kg

DRUGS (1)
  1. DASATINIB. [Suspect]
     Active Substance: DASATINIB
     Indication: ACUTE LYMPHOCYTIC LEUKAEMIA
     Dosage: 140 MILLIGRAM
     Route: 048
     Dates: start: 20200310

REACTIONS (2)
  - Maternal exposure during pregnancy [Unknown]
  - Uterine contractions during pregnancy [Recovering/Resolving]
